FAERS Safety Report 9547380 (Version 1)
Quarter: 2013Q2

REPORT INFORMATION
  Report Type: Spontaneous
  Country: US (occurrence: None)
  Receive Date: 20130524
  Receipt Date: 20130524
  Transmission Date: 20140414
  Serious: No
  Sender: FDA-Public Use
  Company Number: PHEH2012US023991

PATIENT
  Age: 62 Year
  Sex: Female
  Weight: 68 kg

DRUGS (17)
  1. GILENYA (FINGOLIMOD) CAPSULE, 0.5MG [Suspect]
     Indication: MULTIPLE SCLEROSIS
     Route: 048
     Dates: start: 201211
  2. FEXPFEMADOME (FEXPFEMADOME) TABLET [Concomitant]
  3. OMEPRAZOLE (OMEPRAZOLE) CAPSULE [Concomitant]
  4. WELLBUTRIN SR (BUPROPION) TABLET [Concomitant]
  5. TOPAMAX (TOPIRAMATE) TABLET [Concomitant]
  6. BACLOFEN (BCLOFEN) TABLET [Concomitant]
  7. AMPYRA (FAMPRIDINE) TABLET, 10MG [Concomitant]
  8. FLEXERIL (CYCLOBENZAPRINE HYDROCHLORIDE) TABLET [Concomitant]
  9. ASACOL HD (MESALAZINE) TABLET [Concomitant]
  10. CALCIUM D (CALCIUM CARBONATE, COLECALCIFEROL) TABLET [Concomitant]
  11. MULTIPLE VITAMINS (ASCORBIC ACID, ERGOCALCIFEROL, FOLIC ACID, RETINOL, TOCOPHEROL, VITAMIN B NOS) [Concomitant]
  12. VITAMIN B COMPLEX (VITAMIN B COMPLEX) TABLET [Concomitant]
  13. VALIUM (DIAZEPAM) TABLET [Concomitant]
  14. PRAVASTATIN (PRAVASTATIN) TABLET [Concomitant]
  15. COMBIVENT (IPRATROPIUM BROMIDE, SALBUTAMOL SULFATE) [Concomitant]
  16. NUVIGIL (ARMODAFINIL) TABLET [Concomitant]
  17. RESTASIS (CICLOSPORIN) [Concomitant]

REACTIONS (5)
  - Feeling abnormal [None]
  - Fatigue [None]
  - Visual impairment [None]
  - Asthenia [None]
  - Dizziness [None]
